FAERS Safety Report 6360094-3 (Version None)
Quarter: 2009Q3

REPORT INFORMATION
  Report Type: 
  Country: None (occurrence: None)
  Receive Date: 20090917
  Receipt Date: 20090907
  Transmission Date: 20100115
  Serious: Yes (Other)
  Sender: FDA-Public Use
  Company Number: DE-GILEAD-2009-0022922

PATIENT
  Weight: 85 kg

DRUGS (2)
  1. VIREAD [Suspect]
     Indication: HEPATITIS B
     Dates: start: 20090519
  2. METHOTREXATE [Concomitant]
     Indication: PSORIASIS
     Route: 048

REACTIONS (2)
  - ALANINE AMINOTRANSFERASE INCREASED [None]
  - BLOOD PHOSPHORUS DECREASED [None]
